FAERS Safety Report 8448797-8 (Version None)
Quarter: 2012Q2

REPORT INFORMATION
  Report Type: 
  Country: None (occurrence: None)
  Receive Date: 20120619
  Receipt Date: 20120614
  Transmission Date: 20120825
  Serious: Yes (Disabling)
  Sender: FDA-Public Use
  Company Number: US-PFIZER INC-2012144478

PATIENT
  Sex: Male

DRUGS (5)
  1. LYRICA [Suspect]
     Indication: MUSCLE SPASMS
     Dosage: UNK, 2X/DAY
     Route: 048
     Dates: start: 20120201, end: 20120501
  2. LYRICA [Suspect]
     Indication: NECK PAIN
  3. LYRICA [Suspect]
     Indication: MUSCULOSKELETAL PAIN
  4. TIZANIDINE [Concomitant]
     Indication: MUSCLE RELAXANT THERAPY
     Dosage: UNK, EVERY EIGHT HOURS
  5. LYRICA [Suspect]
     Indication: PAIN IN EXTREMITY

REACTIONS (5)
  - MUSCULOSKELETAL PAIN [None]
  - BACK PAIN [None]
  - PAIN IN EXTREMITY [None]
  - NECK PAIN [None]
  - MUSCLE SPASMS [None]
